FAERS Safety Report 15128999 (Version 5)
Quarter: 2019Q1

REPORT INFORMATION
  Report Type: Report from Study
  Country: DE (occurrence: DE)
  Receive Date: 20180711
  Receipt Date: 20190327
  Transmission Date: 20190417
  Serious: Yes (Death, Hospitalization, Other)
  Sender: FDA-Public Use
  Company Number: DE-BRISTOL-MYERS SQUIBB COMPANY-BMS-2018-052721

PATIENT
  Age: 58 Year
  Sex: Male

DRUGS (9)
  1. FENTANYL. [Concomitant]
     Active Substance: FENTANYL
     Indication: PRODUCT USED FOR UNKNOWN INDICATION
     Dosage: 100 ?G PER HOUR, CHANGE EVERY 3 DAYS
     Route: 065
     Dates: start: 20180814, end: 20180822
  2. OXYCODON [Concomitant]
     Active Substance: OXYCODONE
     Indication: NEOPLASM
     Dosage: 20 MG, UNK
     Route: 065
     Dates: end: 20180605
  3. PANTOPRAZOLE [Concomitant]
     Active Substance: PANTOPRAZOLE
     Indication: PROPHYLAXIS
     Dosage: 40 MG, UNK
     Route: 065
  4. NOVAMINSULFON [Concomitant]
     Active Substance: METAMIZOLE
     Indication: PROPHYLAXIS
     Dosage: 4*40 TROFEN DROPS,500 MG/ML BE BEDARF (IF REQUIRED)
     Route: 065
  5. OXYCODON [Concomitant]
     Active Substance: OXYCODONE
     Indication: PRODUCT USED FOR UNKNOWN INDICATION
     Dosage: 40 MG, UNK
     Route: 065
     Dates: start: 20180605
  6. NIVOLUMAB [Suspect]
     Active Substance: NIVOLUMAB
     Indication: SQUAMOUS CELL CARCINOMA OF HEAD AND NECK
     Dosage: 240 MG, Q2WK
     Route: 042
     Dates: start: 20180522, end: 20180822
  7. FENTANYL. [Concomitant]
     Active Substance: FENTANYL
     Indication: PROPHYLAXIS
     Dosage: 50 ?G PER HOUR, CHANGE EVERY 3 DAYS
     Route: 065
     Dates: start: 20180627
  8. GABAPENTIN. [Concomitant]
     Active Substance: GABAPENTIN
     Indication: NEOPLASM
     Dosage: 600 MG, TID
     Route: 065
  9. PROPRANOLOL [Concomitant]
     Active Substance: PROPRANOLOL HYDROCHLORIDE
     Indication: NEOPLASM
     Dosage: 25 MG, UNK
     Route: 065

REACTIONS (10)
  - Anaemia [Recovered/Resolved]
  - Metastases to skin [Recovering/Resolving]
  - C-reactive protein increased [Recovering/Resolving]
  - Blood calcium increased [Not Recovered/Not Resolved]
  - Swelling face [Recovered/Resolved]
  - Non-cardiac chest pain [Recovered/Resolved]
  - Pyrexia [Recovered/Resolved]
  - Malignant neoplasm progression [Fatal]
  - Joint swelling [Unknown]
  - Osteolysis [Not Recovered/Not Resolved]

NARRATIVE: CASE EVENT DATE: 20180526
